FAERS Safety Report 10501104 (Version 1)
Quarter: 2014Q4

REPORT INFORMATION
  Report Type: Spontaneous
  Country: US (occurrence: None)
  Receive Date: 20141006
  Receipt Date: 20141006
  Transmission Date: 20150528
  Serious: No
  Sender: FDA-Public Use
  Company Number: None

PATIENT
  Age: 72 Year
  Sex: Male
  Weight: 127.7 kg

DRUGS (2)
  1. VANCOMYCIN [Suspect]
     Active Substance: VANCOMYCIN
     Indication: OSTEOMYELITIS
     Dosage: OTHER
     Route: 042
     Dates: start: 20121211, end: 20121231
  2. VANCOMYCIN [Suspect]
     Active Substance: VANCOMYCIN
     Indication: RENAL FAILURE
     Dosage: OTHER
     Route: 042
     Dates: start: 20121211, end: 20121231

REACTIONS (2)
  - Hypersensitivity vasculitis [None]
  - Rash maculo-papular [None]

NARRATIVE: CASE EVENT DATE: 20121226
